FAERS Safety Report 15145430 (Version 4)
Quarter: 2019Q2

REPORT INFORMATION
  Report Type: Spontaneous
  Country: US (occurrence: US)
  Receive Date: 20180713
  Receipt Date: 20190606
  Transmission Date: 20190711
  Serious: No
  Sender: FDA-Public Use
  Company Number: US-INTERCEPT-PMOCA2018000914

PATIENT
  Age: 68 Year
  Sex: Female

DRUGS (8)
  1. OCALIVA [Suspect]
     Active Substance: OBETICHOLIC ACID
     Dosage: 5 MG, QD
     Route: 048
     Dates: end: 201812
  2. CETIRIZINE [Concomitant]
     Active Substance: CETIRIZINE HYDROCHLORIDE
     Dosage: 10 MG, UNK
     Route: 048
     Dates: start: 20180522
  3. OCALIVA [Suspect]
     Active Substance: OBETICHOLIC ACID
     Dosage: 5 MG, QOD
     Route: 048
  4. OCALIVA [Suspect]
     Active Substance: OBETICHOLIC ACID
     Indication: PRIMARY BILIARY CHOLANGITIS
     Dosage: 5 MG, QD
     Route: 048
     Dates: start: 20161123, end: 20190415
  5. SENOKOT [Concomitant]
     Active Substance: SENNOSIDES
     Dosage: 8.6 MG, UNK
     Route: 048
     Dates: start: 20180314
  6. URSODIOL. [Concomitant]
     Active Substance: URSODIOL
     Dosage: 300 MG, UNK
     Route: 048
     Dates: start: 20180522
  7. OMEPRAZOLE. [Concomitant]
     Active Substance: OMEPRAZOLE
     Dosage: 20 MG, UNK
     Route: 048
     Dates: start: 20180522
  8. OCALIVA [Suspect]
     Active Substance: OBETICHOLIC ACID
     Dosage: 5 MG, 3X/WK
     Route: 048
     Dates: start: 201812, end: 20190415

REACTIONS (4)
  - Rheumatoid arthritis [Unknown]
  - Cheilitis [Unknown]
  - Oral pain [Unknown]
  - Pruritus [Unknown]

NARRATIVE: CASE EVENT DATE: 2018
